FAERS Safety Report 24964911 (Version 2)
Quarter: 2025Q2

REPORT INFORMATION
  Report Type: Spontaneous
  Country: DE (occurrence: DE)
  Receive Date: 20250213
  Receipt Date: 20250403
  Transmission Date: 20250717
  Serious: Yes (Hospitalization, Other)
  Sender: EMD SERONO INC
  Company Number: DE-Merck Healthcare KGaA-2025006723

PATIENT
  Age: 29 Year
  Sex: Female
  Weight: 69 kg

DRUGS (4)
  1. MAVENCLAD [Suspect]
     Active Substance: CLADRIBINE
     Indication: Multiple sclerosis
     Dates: start: 20241116, end: 20241120
  2. MAVENCLAD [Suspect]
     Active Substance: CLADRIBINE
     Dates: start: 20241216, end: 20241220
  3. MAVENCLAD [Suspect]
     Active Substance: CLADRIBINE
     Dates: start: 20231116, end: 20231120
  4. MAVENCLAD [Suspect]
     Active Substance: CLADRIBINE
     Dates: start: 20231216, end: 20231220

REACTIONS (3)
  - Pneumonia [Recovered/Resolved]
  - Lymphocyte count decreased [Recovered/Resolved]
  - Weight decreased [Recovered/Resolved]

NARRATIVE: CASE EVENT DATE: 20241231
